FAERS Safety Report 23687662 (Version 8)
Quarter: 2024Q4

REPORT INFORMATION
  Report Type: Spontaneous
  Country: PL (occurrence: PL)
  Receive Date: 20240329
  Receipt Date: 20241118
  Transmission Date: 20250115
  Serious: Yes (Death, Hospitalization, Other)
  Sender: AUROBINDO
  Company Number: PL-ROCHE-3528629

PATIENT
  Age: 30 Year
  Sex: Male

DRUGS (28)
  1. CYCLOSPORINE [Suspect]
     Active Substance: CYCLOSPORINE
     Indication: Chronic graft versus host disease
     Dosage: UNK
     Route: 065
  2. CYCLOSPORINE [Suspect]
     Active Substance: CYCLOSPORINE
     Indication: Prophylaxis against graft versus host disease
  3. MELPHALAN [Suspect]
     Active Substance: MELPHALAN
     Indication: Graft versus host disease
     Dosage: UNK
     Route: 065
  4. METOPROLOL [Suspect]
     Active Substance: METOPROLOL
     Indication: Product used for unknown indication
     Dosage: UNK
     Route: 065
  5. AZITHROMYCIN [Suspect]
     Active Substance: AZITHROMYCIN
     Indication: Graft versus host disease
     Dosage: 500 MILLIGRAM
     Route: 065
  6. MONTELUKAST [Suspect]
     Active Substance: MONTELUKAST
     Indication: Graft versus host disease
     Dosage: UNK
     Route: 065
  7. MONTELUKAST [Suspect]
     Active Substance: MONTELUKAST
     Indication: Lung disorder
  8. DEXAMETHASONE [Suspect]
     Active Substance: DEXAMETHASONE
     Indication: Chronic graft versus host disease
     Dosage: UNK
     Route: 065
  9. FLUDARABINE [Suspect]
     Active Substance: FLUDARABINE PHOSPHATE
     Indication: Chronic graft versus host disease
     Dosage: UNK
     Route: 065
  10. FLUTICASONE [Suspect]
     Active Substance: FLUTICASONE
     Indication: Chronic graft versus host disease
     Dosage: UNK
     Route: 065
  11. FLUTICASONE [Suspect]
     Active Substance: FLUTICASONE
     Indication: Graft versus host disease
  12. MYCOPHENOLATE MOFETIL [Suspect]
     Active Substance: MYCOPHENOLATE MOFETIL
     Indication: Chronic graft versus host disease
     Dosage: UNK
     Route: 065
  13. MYCOPHENOLATE MOFETIL [Suspect]
     Active Substance: MYCOPHENOLATE MOFETIL
     Indication: Graft versus host disease
  14. METHYLPREDNISOLONE [Suspect]
     Active Substance: METHYLPREDNISOLONE
     Indication: Chronic graft versus host disease
     Dosage: UNK
     Route: 048
  15. METHYLPREDNISOLONE [Suspect]
     Active Substance: METHYLPREDNISOLONE
     Indication: Graft versus host disease
  16. MOMETASONE FUROATE [Suspect]
     Active Substance: MOMETASONE FUROATE
     Indication: Chronic graft versus host disease
     Dosage: UNK
     Route: 065
  17. METHOTREXATE [Suspect]
     Active Substance: METHOTREXATE
     Indication: Chronic graft versus host disease
     Dosage: UNK
     Route: 065
  18. METHOTREXATE [Suspect]
     Active Substance: METHOTREXATE
     Indication: Graft versus host disease
  19. METHOTREXATE [Suspect]
     Active Substance: METHOTREXATE
     Indication: Prophylaxis against graft versus host disease
  20. RUXOLITINIB [Suspect]
     Active Substance: RUXOLITINIB
     Indication: Chronic graft versus host disease
     Dosage: UNK
     Route: 048
  21. SIROLIMUS [Suspect]
     Active Substance: SIROLIMUS
     Indication: Chronic graft versus host disease
     Dosage: UNK
     Route: 065
  22. TACROLIMUS [Suspect]
     Active Substance: TACROLIMUS
     Indication: Chronic graft versus host disease
     Dosage: UNK
     Route: 065
  23. CANDESARTAN [Suspect]
     Active Substance: CANDESARTAN
     Indication: Product used for unknown indication
     Dosage: 800 MILLIGRAM
     Route: 065
  24. CANDESARTAN [Suspect]
     Active Substance: CANDESARTAN
     Dosage: 8 MILLIGRAM
     Route: 065
  25. SACUBITRIL\VALSARTAN [Suspect]
     Active Substance: SACUBITRIL\VALSARTAN
     Indication: Product used for unknown indication
     Dosage: UNK
     Route: 065
  26. TORSEMIDE [Suspect]
     Active Substance: TORSEMIDE
     Indication: Product used for unknown indication
     Dosage: 10 MILLIGRAM
     Route: 065
  27. FLUDARABINE [Concomitant]
     Active Substance: FLUDARABINE PHOSPHATE
     Indication: Product used for unknown indication
     Dosage: UNK
     Route: 065
  28. MELPHALAN [Concomitant]
     Active Substance: MELPHALAN
     Indication: Product used for unknown indication
     Dosage: UNK
     Route: 065

REACTIONS (21)
  - Pneumonia [Fatal]
  - Weight decreased [Fatal]
  - Lichenoid keratosis [Fatal]
  - Erythema [Fatal]
  - Mastication disorder [Fatal]
  - General physical health deterioration [Fatal]
  - Dyspnoea [Fatal]
  - Chronic graft versus host disease [Fatal]
  - Pleural effusion [Fatal]
  - Disease progression [Fatal]
  - Condition aggravated [Fatal]
  - Drug resistance [Fatal]
  - Disease recurrence [Fatal]
  - Exercise tolerance decreased [Unknown]
  - Pulmonary congestion [Unknown]
  - Heart rate increased [Unknown]
  - Ejection fraction abnormal [Unknown]
  - Cough [Unknown]
  - Off label use [Unknown]
  - Product use in unapproved indication [Unknown]
  - Drug ineffective for unapproved indication [Unknown]
